FAERS Safety Report 11997653 (Version 1)
Quarter: 2016Q1

REPORT INFORMATION
  Report Type: Spontaneous
  Country: US (occurrence: US)
  Receive Date: 20160203
  Receipt Date: 20160203
  Transmission Date: 20160526
  Serious: No
  Sender: FDA-Public Use
  Company Number: US-ANACOR-2015ANA00194

PATIENT
  Sex: Male

DRUGS (1)
  1. KERYDIN [Suspect]
     Active Substance: TAVABOROLE
     Indication: ACCIDENTAL EXPOSURE TO PRODUCT
     Dosage: UNK UNK, ONCE
     Route: 061

REACTIONS (2)
  - Accidental exposure to product [Unknown]
  - Alopecia [Unknown]
